FAERS Safety Report 8379368-X (Version None)
Quarter: 2012Q1

REPORT INFORMATION
  Report Type: 
  Country: None (occurrence: None)
  Receive Date: 20120323
  Receipt Date: 20110315
  Transmission Date: 20120608
  Serious: Yes (Disabling)
  Sender: FDA-Public Use
  Company Number: 163-21880-11032062

PATIENT
  Age: 86 Year
  Sex: Male
  Weight: 96.2 kg

DRUGS (2)
  1. REVLIMID [Suspect]
     Indication: MULTIPLE MYELOMA
     Dosage: 25 MG, DAILY FOR 21 DAYS ON THEN 7 DAYS OFF, PO
     Route: 048
     Dates: start: 20110124
  2. STEROID (ALL OTHER THERAPEUTIC PRODUCTS) (UNKNOWN) [Suspect]
     Indication: PRODUCT USED FOR UNKNOWN INDICATION
     Dosage: ONCE WEEKLY, UNK

REACTIONS (2)
  - NIGHT SWEATS [None]
  - DIARRHOEA [None]
